FAERS Safety Report 5771889-9 (Version None)
Quarter: 2008Q2

REPORT INFORMATION
  Report Type: 
  Country: None (occurrence: None)
  Receive Date: 20080613
  Receipt Date: 20080609
  Transmission Date: 20081010
  Serious: Yes (Other)
  Sender: FDA-Public Use
  Company Number: B0524609A

PATIENT
  Age: 32 Year
  Sex: Female

DRUGS (2)
  1. CEFUROXIME [Suspect]
     Dosage: 500MG TWICE PER DAY
     Dates: start: 20080526, end: 20080526
  2. ANTIBIOTIC [Concomitant]

REACTIONS (3)
  - DRUG EXPOSURE DURING PREGNANCY [None]
  - NAUSEA [None]
  - VOMITING [None]
